FAERS Safety Report 4996844-8 (Version None)
Quarter: 2006Q2

REPORT INFORMATION
  Report Type: 
  Country: None (occurrence: None)
  Receive Date: 20060508
  Receipt Date: 20060508
  Transmission Date: 20061013
  Serious: Yes (Death)
  Sender: FDA-Public Use
  Company Number: None

PATIENT
  Age: 65 Year
  Sex: Male

DRUGS (2)
  1. METRONIDAZOLE [Suspect]
     Indication: ROSACEA
     Dosage: 1 APPLICATION BID TOPICAL
     Route: 061
     Dates: start: 20060210, end: 20060423
  2. METROLOTION [Suspect]
     Dosage: 1 APPLICATION BID TOPICAL
     Route: 061

REACTIONS (1)
  - FALL [None]
